FAERS Safety Report 5471153-1 (Version None)
Quarter: 2007Q3

REPORT INFORMATION
  Report Type: 
  Country: None (occurrence: None)
  Receive Date: 20070928
  Receipt Date: 20070917
  Transmission Date: 20080115
  Serious: Yes (Disabling)
  Sender: FDA-Public Use
  Company Number: GB-ROCHE-519911

PATIENT
  Age: 13 Year
  Sex: Female
  Weight: 61.8 kg

DRUGS (1)
  1. ISOTRETINOIN [Suspect]
     Indication: DRUG USE FOR UNKNOWN INDICATION
     Route: 065
     Dates: start: 20061221, end: 20070425

REACTIONS (2)
  - ARTHRALGIA [None]
  - BONE PAIN [None]
